FAERS Safety Report 4944941-5 (Version None)
Quarter: 2006Q1

REPORT INFORMATION
  Report Type: 
  Country: None (occurrence: None)
  Receive Date: 20060123
  Receipt Date: 20041213
  Transmission Date: 20060701
  Serious: Yes (Death)
  Sender: FDA-Public Use
  Company Number: PHEH2004US12814

PATIENT
  Age: 72 Year
  Sex: Female

DRUGS (1)
  1. SANDOSTATIN LAR DEPOT(OCTREOTIDE WITH POLY (D-LACTIDE-CO-GLYCOLIDE)) [Suspect]
     Indication: NEOPLASM MALIGNANT

REACTIONS (1)
  - COLON CANCER [None]
